FAERS Safety Report 9778643 (Version 1)
Quarter: 2013Q4

REPORT INFORMATION
  Report Type: Spontaneous
  Country: US (occurrence: US)
  Receive Date: 20131223
  Receipt Date: 20131223
  Transmission Date: 20140711
  Serious: Yes (Hospitalization)
  Sender: FDA-Public Use
  Company Number: US-DRREDDYS-USA/USA/13/0036560

PATIENT
  Age: 70 Year
  Sex: Male

DRUGS (7)
  1. IBUPROFEN [Suspect]
     Indication: BACK PAIN
     Route: 065
  2. HYDROCODONE [Suspect]
     Indication: BACK PAIN
     Route: 065
  3. OXYCODONE [Suspect]
     Indication: BACK PAIN
     Route: 065
  4. TRAMADOL [Suspect]
     Indication: PAIN
     Route: 065
  5. ASPIRIN [Suspect]
     Indication: BACK PAIN
     Route: 065
  6. CLONAZEPAM [Suspect]
     Indication: BACK PAIN
     Route: 065
  7. CYCLOBENZAPRINE [Suspect]
     Indication: BACK PAIN
     Route: 065

REACTIONS (1)
  - Extradural haematoma [Recovered/Resolved]
